FAERS Safety Report 20836592 (Version 1)
Quarter: 2022Q2

REPORT INFORMATION
  Report Type: Spontaneous
  Country: FI (occurrence: FI)
  Receive Date: 20220517
  Receipt Date: 20220517
  Transmission Date: 20220721
  Serious: Yes (Disabling)
  Sender: FDA-Public Use
  Company Number: None

PATIENT
  Age: 69 Year
  Sex: Male

DRUGS (3)
  1. CARBIDOPA\LEVODOPA [Suspect]
     Active Substance: CARBIDOPA\LEVODOPA
     Indication: Parkinson^s disease
     Dosage: 4,DF,DAILY
     Route: 048
  2. NEUPRO [Concomitant]
     Active Substance: ROTIGOTINE
     Indication: Parkinson^s disease
     Dosage: 6,MG,DAILY
     Route: 062
  3. RASAGILIN KRKA [Concomitant]
     Indication: Parkinson^s disease
     Dosage: 1,MG,DAILY
     Route: 048

REACTIONS (4)
  - Decreased activity [Recovered/Resolved]
  - Social avoidant behaviour [Recovered/Resolved]
  - Somnolence [Recovered/Resolved]
  - Food interaction [Recovered/Resolved]

NARRATIVE: CASE EVENT DATE: 20190101
